FAERS Safety Report 9557042 (Version 2)
Quarter: 2013Q3

REPORT INFORMATION
  Report Type: Report from Study
  Country: IT (occurrence: IT)
  Receive Date: 20130923
  Receipt Date: 20130926
  Transmission Date: 20140515
  Serious: Yes (Death)
  Sender: FDA-Public Use
  Company Number: PHHO2013IT012304

PATIENT
  Sex: 0

DRUGS (6)
  1. AFINITOR [Suspect]
     Indication: BREAST CANCER METASTATIC
     Dosage: 10 MG, UNK
     Route: 048
     Dates: start: 20130603, end: 20130823
  2. EXEMESTANE [Suspect]
     Indication: BREAST CANCER METASTATIC
     Dosage: 25 MG, UNK
     Route: 048
     Dates: start: 20130603
  3. DEXAMETHASONE [Concomitant]
     Dosage: 4 MG, DAILY
     Route: 048
     Dates: start: 20130823
  4. CACIT VITAMIN D3 [Concomitant]
     Indication: SUPPLEMENTATION THERAPY
     Dosage: 25 MG, DAILY
     Route: 048
     Dates: start: 20100923
  5. LASIX [Concomitant]
     Indication: OEDEMA PERIPHERAL
     Dosage: 2.5 MG, DAILY
     Route: 048
     Dates: start: 20130802
  6. ACYCLOVIR [Concomitant]
     Indication: ORAL HERPES
     Dosage: 2 G, DAILY
     Route: 048
     Dates: start: 20130823

REACTIONS (1)
  - Cardiac arrest [Fatal]
